FAERS Safety Report 21607879 (Version 2)
Quarter: 2022Q4

REPORT INFORMATION
  Report Type: Spontaneous
  Country: IE (occurrence: IE)
  Receive Date: 20221117
  Receipt Date: 20221128
  Transmission Date: 20230113
  Serious: No
  Sender: FDA-Public Use
  Company Number: IE-AMGEN-IRLSP2022181116

PATIENT
  Age: 34 Year
  Sex: Female

DRUGS (1)
  1. ADALIMUMAB [Suspect]
     Active Substance: ADALIMUMAB
     Indication: Hidradenitis
     Dosage: 40 MILLIGRAM X 6/12
     Route: 058

REACTIONS (3)
  - Pustular psoriasis [Recovered/Resolved]
  - Paradoxical psoriasis [Recovered/Resolved]
  - Palmoplantar pustulosis [Recovered/Resolved]
